FAERS Safety Report 23380807 (Version 3)
Quarter: 2024Q3

REPORT INFORMATION
  Report Type: Spontaneous
  Country: IT (occurrence: IT)
  Receive Date: 20240109
  Receipt Date: 20240820
  Transmission Date: 20241016
  Serious: Yes (Other)
  Sender: AUROBINDO
  Company Number: IT-AUROBINDO-AUR-APL-2023-080761

PATIENT
  Age: 3 Month
  Sex: Male

DRUGS (11)
  1. LACOSAMIDE [Suspect]
     Active Substance: LACOSAMIDE
     Indication: Epilepsy
     Dosage: UNK
     Route: 065
  2. LEVETIRACETAM [Suspect]
     Active Substance: LEVETIRACETAM
     Indication: Epilepsy
     Dosage: UNK
     Route: 065
  3. VALPROATE SODIUM [Suspect]
     Active Substance: VALPROATE SODIUM
     Indication: Epilepsy
     Dosage: UNK
     Route: 065
  4. TOPIRAMATE [Suspect]
     Active Substance: TOPIRAMATE
     Indication: Epilepsy
     Dosage: UNK
     Route: 065
  5. CLOBAZAM [Suspect]
     Active Substance: CLOBAZAM
     Indication: Epilepsy
     Dosage: UNK
     Route: 065
  6. PREDNISONE [Suspect]
     Active Substance: PREDNISONE
     Indication: Epilepsy
     Dosage: UNK
     Route: 065
  7. TRAMETINIB [Suspect]
     Active Substance: TRAMETINIB
     Indication: Epilepsy
     Dosage: 0.025 MILLIGRAM/KILOGRAM, ONCE A DAY
     Route: 065
  8. VIGABATRIN [Suspect]
     Active Substance: VIGABATRIN
     Indication: Epilepsy
     Dosage: UNK
     Route: 065
  9. CLOBAZAM [Concomitant]
     Active Substance: CLOBAZAM
     Indication: Epilepsy
     Dosage: UNK
     Route: 065
  10. TRAMETINIB [Concomitant]
     Active Substance: TRAMETINIB
     Indication: Epilepsy
     Dosage: 0.025 MILLIGRAM/KILOGRAM, ONCE A DAY
     Route: 065
  11. VALPROIC ACID [Concomitant]
     Active Substance: VALPROIC ACID
     Indication: Epilepsy
     Dosage: UNK
     Route: 065

REACTIONS (6)
  - Gastroenteritis viral [Unknown]
  - Colitis [Unknown]
  - Hypovolaemic shock [Unknown]
  - Therapy partial responder [Unknown]
  - Off label use [Unknown]
  - Drug ineffective [Unknown]
